FAERS Safety Report 11621325 (Version 2)
Quarter: 2015Q4

REPORT INFORMATION
  Report Type: Spontaneous
  Country: US (occurrence: US)
  Receive Date: 20151012
  Receipt Date: 20151030
  Transmission Date: 20160304
  Serious: No
  Sender: FDA-Public Use
  Company Number: US-GLAXOSMITHKLINE-US2015143672

PATIENT
  Sex: Male

DRUGS (1)
  1. ABREVA [Suspect]
     Active Substance: DOCOSANOL
     Indication: HERPES VIRUS INFECTION
     Dosage: UNK

REACTIONS (6)
  - Condition aggravated [Not Recovered/Not Resolved]
  - Lip swelling [Unknown]
  - Application site ulcer [Unknown]
  - Inappropriate schedule of drug administration [Unknown]
  - Herpes virus infection [Not Recovered/Not Resolved]
  - Hypersensitivity [Unknown]
